FAERS Safety Report 23122556 (Version 2)
Quarter: 2023Q4

REPORT INFORMATION
  Report Type: Spontaneous
  Country: US (occurrence: US)
  Receive Date: 20231030
  Receipt Date: 20231031
  Transmission Date: 20240110
  Serious: No
  Sender: FDA-Public Use
  Company Number: US-002147023-NVSC2023US231700

PATIENT

DRUGS (1)
  1. PLUVICTO [Suspect]
     Active Substance: LUTETIUM LU-177 VIPIVOTIDE TETRAXETAN
     Indication: Prostate cancer
     Dosage: 7330 MBQ EVERY 6 WEEKS
     Route: 042
     Dates: start: 20231019, end: 20231019

REACTIONS (2)
  - Device issue [Unknown]
  - Medication error [Unknown]

NARRATIVE: CASE EVENT DATE: 20231019
